FAERS Safety Report 8489576-5 (Version None)
Quarter: 2012Q3

REPORT INFORMATION
  Report Type: 
  Country: None (occurrence: None)
  Receive Date: 20120705
  Receipt Date: 20120628
  Transmission Date: 20120928
  Serious: Yes (Other)
  Sender: FDA-Public Use
  Company Number: GB-ALLERGAN-1208841US

PATIENT
  Sex: Male

DRUGS (1)
  1. BETAGAN [Suspect]
     Indication: INTRAOCULAR PRESSURE INCREASED
     Dosage: RIGHT EYE UNSPECIFIED DOSE
     Route: 047
     Dates: start: 19800101

REACTIONS (4)
  - THYROTOXIC CRISIS [None]
  - CATARACT [None]
  - INTRAOCULAR LENS IMPLANT [None]
  - ADVERSE EVENT [None]
